FAERS Safety Report 7387565-5 (Version None)
Quarter: 2011Q1

REPORT INFORMATION
  Report Type: 
  Country: None (occurrence: None)
  Receive Date: 20110331
  Receipt Date: 20101228
  Transmission Date: 20110831
  Serious: No
  Sender: FDA-Public Use
  Company Number: US-BAYER-2011-025904

PATIENT
  Sex: Female
  Weight: 68 kg

DRUGS (2)
  1. SYNTHROID [Concomitant]
  2. MULTI-VITAMINS [Suspect]

REACTIONS (1)
  - FLATULENCE [None]
